FAERS Safety Report 7495634-4 (Version None)
Quarter: 2011Q2

REPORT INFORMATION
  Report Type: 
  Country: None (occurrence: None)
  Receive Date: 20110513
  Receipt Date: 20110429
  Transmission Date: 20111010
  Serious: Yes (Hospitalization, Other)
  Sender: FDA-Public Use
  Company Number: 2011P1006209

PATIENT
  Age: 52 Year
  Sex: Female

DRUGS (15)
  1. MATURE MULTIVITAMIN [Concomitant]
  2. ULTRAM [Concomitant]
  3. HEPARIN [Suspect]
     Dates: start: 20110301, end: 20110301
  4. TOPAMAX [Concomitant]
  5. MOTRIN [Concomitant]
  6. CYMBALTA [Concomitant]
  7. WARFARIN SODIUM [Suspect]
     Indication: THROMBOSIS
     Dosage: 4 MG;QD;PO ; 2 MG;TU AND SA;PO ; 4 MG;5 DAYS / WEEK;PO ; 5 MG;QD;PO
     Route: 048
     Dates: start: 20110428
  8. WARFARIN SODIUM [Suspect]
     Indication: THROMBOSIS
     Dosage: 4 MG;QD;PO ; 2 MG;TU AND SA;PO ; 4 MG;5 DAYS / WEEK;PO ; 5 MG;QD;PO
     Route: 048
     Dates: start: 20110401, end: 20110428
  9. WARFARIN SODIUM [Suspect]
     Indication: THROMBOSIS
     Dosage: 4 MG;QD;PO ; 2 MG;TU AND SA;PO ; 4 MG;5 DAYS / WEEK;PO ; 5 MG;QD;PO
     Route: 048
     Dates: end: 20110301
  10. WARFARIN SODIUM [Suspect]
     Indication: THROMBOSIS
     Dosage: 4 MG;QD;PO ; 2 MG;TU AND SA;PO ; 4 MG;5 DAYS / WEEK;PO ; 5 MG;QD;PO
     Route: 048
     Dates: start: 20110401, end: 20110428
  11. BENADRYL [Concomitant]
  12. IMTREX [Concomitant]
  13. FIBER TABLETS [Concomitant]
  14. RANITIDINE [Concomitant]
  15. FISH OIL [Concomitant]

REACTIONS (10)
  - PROTHROMBIN TIME SHORTENED [None]
  - PRODUCT QUALITY ISSUE [None]
  - INTESTINAL OBSTRUCTION [None]
  - SUPERFICIAL INJURY OF EYE [None]
  - EYE INFECTION [None]
  - PROTHROMBIN TIME PROLONGED [None]
  - EYE IRRITATION [None]
  - PANCREATITIS [None]
  - HYPOPHAGIA [None]
  - DRUG DISPENSING ERROR [None]
